FAERS Safety Report 7521524-4 (Version None)
Quarter: 2011Q2

REPORT INFORMATION
  Report Type: 
  Country: None (occurrence: None)
  Receive Date: 20110603
  Receipt Date: 20110524
  Transmission Date: 20111010
  Serious: Yes (Hospitalization, Other)
  Sender: FDA-Public Use
  Company Number: US-BAYER-201036111NA

PATIENT
  Age: 33 Year
  Sex: Female
  Weight: 70.295 kg

DRUGS (3)
  1. YASMIN [Suspect]
     Indication: PREMENSTRUAL SYNDROME
  2. YASMIN [Suspect]
     Indication: ACNE
     Dosage: UNK UNK, QD
     Route: 048
     Dates: start: 20060101, end: 20070101
  3. YASMIN [Suspect]

REACTIONS (5)
  - CHOLELITHIASIS [None]
  - DYSPEPSIA [None]
  - ABDOMINAL PAIN [None]
  - CHOLECYSTITIS ACUTE [None]
  - GASTROINTESTINAL DISORDER [None]
